FAERS Safety Report 5998654-1 (Version None)
Quarter: 2008Q4

REPORT INFORMATION
  Report Type: 
  Country: None (occurrence: None)
  Receive Date: 20081213
  Receipt Date: 20080715
  Transmission Date: 20090506
  Serious: No
  Sender: FDA-Public Use
  Company Number: US-AMGEN-KDL292015

PATIENT
  Sex: Female

DRUGS (4)
  1. ENBREL [Suspect]
     Indication: RHEUMATOID ARTHRITIS
     Route: 058
     Dates: start: 20000908
  2. PLAQUENIL [Concomitant]
     Route: 048
  3. LODINE [Concomitant]
  4. IBUPROFEN [Concomitant]

REACTIONS (4)
  - DRUG EFFECT DECREASED [None]
  - INSOMNIA [None]
  - NODULE [None]
  - RHEUMATOID ARTHRITIS [None]
